FAERS Safety Report 8516807-5 (Version None)
Quarter: 2012Q3

REPORT INFORMATION
  Report Type: 
  Country: None (occurrence: None)
  Receive Date: 20120718
  Receipt Date: 20120715
  Transmission Date: 20120928
  Serious: Yes (Hospitalization)
  Sender: FDA-Public Use
  Company Number: BE-AMGEN-BELSP2012030277

PATIENT
  Age: 66 Year
  Sex: Female

DRUGS (6)
  1. PROLIA [Suspect]
     Indication: PRODUCT USED FOR UNKNOWN INDICATION
     Dosage: UNK
  2. INDERAL RETARD [Concomitant]
  3. VITAMIN B-12 [Concomitant]
  4. MAGNESIUM SULFATE [Concomitant]
  5. DIOVAN [Concomitant]
  6. CALCIUM CARBONATE [Concomitant]
     Dosage: UNK

REACTIONS (3)
  - HYPOCALCAEMIA [None]
  - TETANY [None]
  - MUSCULAR WEAKNESS [None]
